FAERS Safety Report 9197280 (Version 2)
Quarter: 2013Q2

REPORT INFORMATION
  Report Type: Report from Study
  Country: ZW (occurrence: ZW)
  Receive Date: 20130328
  Receipt Date: 20130426
  Transmission Date: 20140414
  Serious: Yes (Death, Disabling, Other)
  Sender: FDA-Public Use
  Company Number: ZW-ABBOTT-13P-190-1065796-00

PATIENT
  Age: 59 Year
  Sex: Male
  Weight: 76.7 kg

DRUGS (2)
  1. KALETRA [Suspect]
     Indication: HIV INFECTION
     Route: 048
     Dates: start: 20110428, end: 20130415
  2. COTRIMOXAZOLE [Concomitant]
     Indication: PRODUCT USED FOR UNKNOWN INDICATION
     Dates: start: 20050615, end: 20130415

REACTIONS (5)
  - Oesophageal carcinoma [Fatal]
  - Weight decreased [Not Recovered/Not Resolved]
  - Dysphagia [Not Recovered/Not Resolved]
  - Pain [Not Recovered/Not Resolved]
  - Dysphagia [Not Recovered/Not Resolved]
